FAERS Safety Report 15085001 (Version 1)
Quarter: 2018Q2

REPORT INFORMATION
  Report Type: Spontaneous
  Country: CN (occurrence: CN)
  Receive Date: 20180628
  Receipt Date: 20180628
  Transmission Date: 20180711
  Serious: Yes (Hospitalization)
  Sender: FDA-Public Use
  Company Number: CN-ELI_LILLY_AND_COMPANY-CN201806009735

PATIENT
  Age: 33 Year
  Sex: Male
  Weight: 66 kg

DRUGS (1)
  1. HUMULIN 70/30 [Suspect]
     Active Substance: INSULIN HUMAN
     Indication: PRODUCT USED FOR UNKNOWN INDICATION
     Dosage: 10 U, BID (MORNING 10 UNITS, NIGHT 10 UNITS)
     Route: 058
     Dates: start: 2017, end: 20180613

REACTIONS (1)
  - Blood glucose abnormal [Recovering/Resolving]
